FAERS Safety Report 9661347 (Version 1)
Quarter: 2013Q4

REPORT INFORMATION
  Report Type: Spontaneous
  Country: US (occurrence: None)
  Receive Date: 20131030
  Receipt Date: 20131030
  Transmission Date: 20140711
  Serious: Yes (Other)
  Sender: FDA-Public Use
  Company Number: AUR-APL-2013-08910

PATIENT
  Age: 38 Year
  Sex: 0
  Weight: 112 kg

DRUGS (4)
  1. VALPROATE SEMISODIUM [Suspect]
     Indication: SCHIZOAFFECTIVE DISORDER
  2. CLOZAPINE [Suspect]
     Indication: SCHIZOAFFECTIVE DISORDER
  3. ASPIRIN [Suspect]
     Indication: PRODUCT USED FOR UNKNOWN INDICATION
  4. OLANZAPINE [Concomitant]

REACTIONS (2)
  - Drug level decreased [None]
  - Drug interaction [None]
